FAERS Safety Report 14598462 (Version 2)
Quarter: 2018Q4

REPORT INFORMATION
  Report Type: Report from Study
  Country: US (occurrence: US)
  Receive Date: 20180305
  Receipt Date: 20181106
  Transmission Date: 20190204
  Serious: Yes (Other)
  Sender: FDA-Public Use
  Company Number: US-JAZZ-2018-US-003698

PATIENT
  Sex: Male

DRUGS (5)
  1. TRAMADOL. [Suspect]
     Active Substance: TRAMADOL
     Indication: SWELLING
  2. XYREM [Suspect]
     Active Substance: SODIUM OXYBATE
     Dosage: 2.25 G, BID
     Route: 048
  3. XYREM [Suspect]
     Active Substance: SODIUM OXYBATE
     Indication: NARCOLEPSY
     Dosage: 2.25 G, BID
     Route: 048
     Dates: start: 200904, end: 200904
  4. XYREM [Suspect]
     Active Substance: SODIUM OXYBATE
     Dosage: DOSE ADJUSTMENT
     Route: 048
     Dates: start: 200904, end: 200905
  5. XYREM [Suspect]
     Active Substance: SODIUM OXYBATE
     Dosage: 4.5 G, BID
     Route: 048
     Dates: start: 200905, end: 2009

REACTIONS (12)
  - Major depression [Unknown]
  - Acarodermatitis [Not Recovered/Not Resolved]
  - Intentional product use issue [Unknown]
  - Drug hypersensitivity [Not Recovered/Not Resolved]
  - Hypertension [Unknown]
  - Feeling abnormal [Not Recovered/Not Resolved]
  - Back disorder [Unknown]
  - Malaise [Unknown]
  - Skin irritation [Unknown]
  - Drug ineffective [Not Recovered/Not Resolved]
  - Arthritis [Unknown]
  - Swelling [Unknown]
